FAERS Safety Report 5290683-9 (Version None)
Quarter: 2007Q2

REPORT INFORMATION
  Report Type: 
  Country: None (occurrence: None)
  Receive Date: 20070405
  Receipt Date: 20070405
  Transmission Date: 20071010
  Serious: Yes (Hospitalization)
  Sender: FDA-Public Use
  Company Number: None

PATIENT
  Age: 34 Year
  Sex: Female

DRUGS (11)
  1. OMNIPAQUE 140 [Suspect]
     Indication: ABDOMEN SCAN
     Dosage: 100 ML IV OTU
     Route: 042
     Dates: start: 20061208
  2. OMNIPAQUE 140 [Suspect]
     Indication: COMPUTERISED TOMOGRAM
     Dosage: 100 ML IV OTU
     Route: 042
     Dates: start: 20061208
  3. EFFEXOR [Concomitant]
  4. TRILEPTAL [Concomitant]
  5. ABILIFY [Concomitant]
  6. TRAZODONE HCL [Concomitant]
  7. WARFARIN SODIUM [Concomitant]
  8. ACIPHEY [Concomitant]
  9. ENABEY [Concomitant]
  10. KLONIPIN [Concomitant]
  11. VICODIN [Concomitant]

REACTIONS (4)
  - HYPOAESTHESIA [None]
  - INFUSION SITE EXTRAVASATION [None]
  - OEDEMA PERIPHERAL [None]
  - PAIN IN EXTREMITY [None]
